FAERS Safety Report 8055572-5 (Version None)
Quarter: 2012Q1

REPORT INFORMATION
  Report Type: 
  Country: None (occurrence: None)
  Receive Date: 20120119
  Receipt Date: 20120106
  Transmission Date: 20120608
  Serious: Yes (Hospitalization)
  Sender: FDA-Public Use
  Company Number: US-UCBSA-048063

PATIENT
  Age: 57 Year
  Sex: Female
  Weight: 86.6 kg

DRUGS (14)
  1. PHENERGAN [Concomitant]
     Indication: NAUSEA
     Dosage: ONCE IN EVERY 6 HOURS AS NEEDED
     Route: 048
  2. ASCORBIC ACID [Concomitant]
     Indication: HYPOVITAMINOSIS
     Dosage: ONE TABLET DAILY
     Route: 048
  3. ENTOCROT [Concomitant]
     Indication: HYPERTENSION
     Route: 048
  4. LASIX [Concomitant]
     Indication: HYPERTENSION
     Route: 048
  5. LANTUS [Concomitant]
     Indication: TYPE 2 DIABETES MELLITUS
     Dosage: 25 UNITS AT BED TIME
     Route: 058
  6. PERCOCET [Concomitant]
     Indication: PAIN
     Dosage: 5/325, 1-2 TABLET EVERY 4 HOURS AS NEEDED
     Route: 048
  7. CALCIUM CALTRATE [Concomitant]
     Dosage: ONE TABLET DAILY
     Route: 048
  8. CIMZIA [Suspect]
     Indication: CROHN'S DISEASE
     Route: 058
     Dates: start: 20111028
  9. NOVOLIN 70/30 [Concomitant]
     Indication: TYPE 2 DIABETES MELLITUS
     Dosage: 25 UNITS: TWICE A DAY: DAILY DOSE 50 UNITS
     Route: 058
  10. VITAMIN B-12 [Concomitant]
     Indication: HYPOVITAMINOSIS
     Route: 030
  11. M.V.I. [Concomitant]
     Dosage: 1 TABLET DAILY
     Route: 048
  12. PRILOSEC [Concomitant]
     Indication: GASTROOESOPHAGEAL REFLUX DISEASE
     Route: 048
  13. DURAGESIC-100 [Concomitant]
     Indication: PAIN
     Route: 061
  14. IRON [Concomitant]
     Indication: ANAEMIA
     Route: 048

REACTIONS (1)
  - NEPHROTIC SYNDROME [None]
